FAERS Safety Report 6814266-1 (Version None)
Quarter: 2010Q3

REPORT INFORMATION
  Report Type: 
  Country: None (occurrence: None)
  Receive Date: 20100702
  Receipt Date: 20100629
  Transmission Date: 20110219
  Serious: Yes (Life-Threatening)
  Sender: FDA-Public Use
  Company Number: JP-BRACCO-003657

PATIENT
  Age: 8 Year
  Sex: Female

DRUGS (1)
  1. IOPAMIDOL [Suspect]
     Indication: ANGIOGRAM
     Route: 042
     Dates: start: 20100615, end: 20100615

REACTIONS (3)
  - CARDIO-RESPIRATORY ARREST [None]
  - RENAL FAILURE [None]
  - RESPIRATORY FAILURE [None]
